FAERS Safety Report 6054103-9 (Version None)
Quarter: 2009Q1

REPORT INFORMATION
  Report Type: 
  Country: None (occurrence: None)
  Receive Date: 20090127
  Receipt Date: 20090117
  Transmission Date: 20090719
  Serious: Yes (Hospitalization)
  Sender: FDA-Public Use
  Company Number: BR-PFIZER INC-2008057565

PATIENT

DRUGS (1)
  1. LIPITOR [Suspect]
     Dosage: 20MG (HALF OF 40 MG TABLET DAILY)
     Route: 048
     Dates: start: 20080620

REACTIONS (1)
  - CEREBROVASCULAR ACCIDENT [None]
